FAERS Safety Report 5249539-X (Version None)
Quarter: 2007Q1

REPORT INFORMATION
  Report Type: 
  Country: None (occurrence: None)
  Receive Date: 20070228
  Receipt Date: 20060131
  Transmission Date: 20070707
  Serious: No
  Sender: FDA-Public Use
  Company Number: US-GLAXOSMITHKLINE-A0591975A

PATIENT
  Sex: Female

DRUGS (5)
  1. IMITREX [Suspect]
     Indication: MIGRAINE
     Route: 065
  2. ZOMIG [Suspect]
     Indication: MIGRAINE
     Route: 065
  3. RELPAX [Concomitant]
  4. AMERGE [Concomitant]
  5. FIORICET [Concomitant]

REACTIONS (1)
  - HYPERSENSITIVITY [None]
